FAERS Safety Report 9280712 (Version 2)
Quarter: 2013Q4

REPORT INFORMATION
  Report Type: Spontaneous
  Country: US (occurrence: US)
  Receive Date: 20130509
  Receipt Date: 20131202
  Transmission Date: 20140711
  Serious: Yes (Other)
  Sender: FDA-Public Use
  Company Number: US-PFIZER INC-2013140098

PATIENT
  Age: 76 Year
  Sex: Female
  Weight: 81.6 kg

DRUGS (8)
  1. LEVOXYL [Suspect]
     Indication: HYPOTHYROIDISM
     Dosage: 75UG FOR 5 DAYS A WEEK AND 75UG TWO TIMES A DAY FOR REMAINING 2 DAYS OF WEEK
     Route: 048
  2. IRBESARTAN [Concomitant]
     Dosage: 300 MG, 1X/DAY
  3. CELEXA [Concomitant]
     Dosage: 20 MG, 1X/DAY
  4. XANAX [Concomitant]
     Dosage: 2 MG, 2X/DAY
  5. TOPROL XL [Concomitant]
     Dosage: 25 MG, 1X/DAY
  6. PRAVASTATIN [Concomitant]
     Dosage: 40 MG, 1X/DAY
  7. ASPIRIN [Concomitant]
     Dosage: 81 MG, 1X/DAY
  8. PROTONIX [Concomitant]
     Indication: GASTRITIS
     Dosage: 40 MG, 1X/DAY

REACTIONS (5)
  - Intervertebral disc degeneration [Unknown]
  - Hepatic steatosis [Unknown]
  - Arthropathy [Unknown]
  - Arthralgia [Unknown]
  - Weight increased [Unknown]
